FAERS Safety Report 9230541 (Version 1)
Quarter: 2013Q2

REPORT INFORMATION
  Report Type: Spontaneous
  Country: CA (occurrence: None)
  Receive Date: 20130411
  Receipt Date: 20130411
  Transmission Date: 20140414
  Serious: Yes (Disabling)
  Sender: FDA-Public Use
  Company Number: 2013SA033466

PATIENT
  Sex: Female

DRUGS (2)
  1. ICY HOT MEDICATED [Suspect]
     Indication: FALL
     Dosage: 1 DOSAGE FORM; ONCE;
     Dates: start: 20111112, end: 20111112
  2. ICY HOT MEDICATED [Suspect]
     Indication: LIMB INJURY
     Dosage: 1 DOSAGE FORM; ONCE;
     Dates: start: 20111112, end: 20111112

REACTIONS (21)
  - Chemical injury [None]
  - Headache [None]
  - Pain in extremity [None]
  - Dizziness [None]
  - Nausea [None]
  - Vomiting [None]
  - Decreased appetite [None]
  - Scar [None]
  - Fatigue [None]
  - Anxiety [None]
  - Emotional distress [None]
  - Frustration [None]
  - Nervousness [None]
  - Depression [None]
  - Insomnia [None]
  - Discomfort [None]
  - Sleep disorder [None]
  - Nightmare [None]
  - Skin necrosis [None]
  - Anhedonia [None]
  - Irritability [None]
